FAERS Safety Report 8397552-6 (Version None)
Quarter: 2012Q2

REPORT INFORMATION
  Report Type: 
  Country: None (occurrence: None)
  Receive Date: 20120531
  Receipt Date: 20120522
  Transmission Date: 20120825
  Serious: Yes (Other)
  Sender: FDA-Public Use
  Company Number: US-BAYER-2012-021851

PATIENT
  Age: 25 Year
  Sex: Female

DRUGS (1)
  1. YAZ [Suspect]
     Indication: CONTRACEPTION
     Dosage: UNK
     Dates: start: 20090401, end: 20090701

REACTIONS (5)
  - ANXIETY [None]
  - CHEST PAIN [None]
  - PSYCHOLOGICAL TRAUMA [None]
  - CHOLELITHIASIS [None]
  - EMOTIONAL DISTRESS [None]
